FAERS Safety Report 6878490-4 (Version None)
Quarter: 2010Q2

REPORT INFORMATION
  Report Type: 
  Country: None (occurrence: None)
  Receive Date: 20100624
  Receipt Date: 20100227
  Transmission Date: 20101027
  Serious: No
  Sender: FDA-Public Use
  Company Number: DKLU1060651

PATIENT
  Age: 6 Year
  Sex: Female

DRUGS (4)
  1. SABRIL [Suspect]
     Indication: CONVULSION
     Dosage: ORAL; 1500 MG MILLIGRAM(S), 2 IN 1 D, ORAL
     Route: 048
     Dates: end: 20100113
  2. SABRIL [Suspect]
     Indication: CONVULSION
     Dosage: ORAL; 1500 MG MILLIGRAM(S), 2 IN 1 D, ORAL
     Route: 048
     Dates: start: 20100114
  3. DIAZEPAM [Concomitant]
  4. MELATONIN (MELATONIN) [Concomitant]

REACTIONS (3)
  - INCONTINENCE [None]
  - INSOMNIA [None]
  - URINARY HESITATION [None]
